FAERS Safety Report 8834714 (Version 1)
Quarter: 2012Q4

REPORT INFORMATION
  Report Type: Report from Study
  Country: US (occurrence: US)
  Receive Date: 20121010
  Receipt Date: 20121010
  Transmission Date: 20130627
  Serious: Yes (Other)
  Sender: FDA-Public Use
  Company Number: US-JNJFOC-20121005107

PATIENT
  Age: 86 Year
  Sex: Male
  Weight: 93.9 kg

DRUGS (3)
  1. XARELTO [Suspect]
     Indication: CEREBROVASCULAR ACCIDENT PROPHYLAXIS
     Route: 048
     Dates: start: 20121004
  2. XARELTO [Suspect]
     Indication: ATRIAL FIBRILLATION
     Route: 048
     Dates: start: 20121004
  3. RESTORIL [Suspect]
     Indication: SLEEP DISORDER
     Dates: start: 20121004

REACTIONS (1)
  - Faeces discoloured [Not Recovered/Not Resolved]
